FAERS Safety Report 22006517 (Version 2)
Quarter: 2023Q4

REPORT INFORMATION
  Report Type: Spontaneous
  Country: IT (occurrence: None)
  Receive Date: 20230217
  Receipt Date: 20231012
  Transmission Date: 20240109
  Serious: No
  Sender: FDA-Public Use
  Company Number: IT-ROCHE-3280354

PATIENT
  Sex: Female
  Weight: 69 kg

DRUGS (1)
  1. OCREVUS [Suspect]
     Active Substance: OCRELIZUMAB
     Indication: Multiple sclerosis
     Route: 065
     Dates: start: 20190902, end: 20190916

REACTIONS (2)
  - Gestational diabetes [Unknown]
  - Maternal exposure before pregnancy [Unknown]
